FAERS Safety Report 4648585-4 (Version None)
Quarter: 2005Q2

REPORT INFORMATION
  Report Type: 
  Country: None (occurrence: None)
  Receive Date: 20050427
  Receipt Date: 20050415
  Transmission Date: 20051028
  Serious: Yes (Other)
  Sender: FDA-Public Use
  Company Number: 2005057855

PATIENT
  Age: 59 Year
  Sex: Female
  Weight: 62 kg

DRUGS (1)
  1. ZITHROMAX [Suspect]
     Indication: RESPIRATORY DISORDER
     Dosage: 500 MG (250 MG, BID), ORAL
     Route: 048
     Dates: start: 20050202, end: 20050204

REACTIONS (4)
  - ANGIONEUROTIC OEDEMA [None]
  - JOINT SWELLING [None]
  - PAIN IN EXTREMITY [None]
  - TENOSYNOVITIS [None]
